FAERS Safety Report 23742402 (Version 1)
Quarter: 2024Q2

REPORT INFORMATION
  Report Type: Spontaneous
  Country: US (occurrence: None)
  Receive Date: 20240412
  Receipt Date: 20240412
  Transmission Date: 20240716
  Serious: No
  Sender: FDA-Public Use
  Company Number: None

PATIENT
  Sex: Female
  Weight: 55.8 kg

DRUGS (7)
  1. ESCITALOPRAM OXALATE [Suspect]
     Active Substance: ESCITALOPRAM OXALATE
     Indication: Obsessive-compulsive disorder
     Dosage: OTHER QUANTITY : 1 TABLET(S);?FREQUENCY : DAILY;?
     Route: 048
     Dates: start: 20230701, end: 20240101
  2. Birth control (Xulane) [Concomitant]
  3. Bupoprin [Concomitant]
  4. IRON [Concomitant]
     Active Substance: IRON
  5. women^s multiviamin [Concomitant]
  6. utiva [Concomitant]
  7. MAGNESIUM [Concomitant]
     Active Substance: MAGNESIUM

REACTIONS (4)
  - Loss of libido [None]
  - Female sexual arousal disorder [None]
  - Inadequate lubrication [None]
  - Female orgasmic disorder [None]
